FAERS Safety Report 5346060-5 (Version None)
Quarter: 2007Q2

REPORT INFORMATION
  Report Type: 
  Country: None (occurrence: None)
  Receive Date: 20070605
  Receipt Date: 20070525
  Transmission Date: 20071010
  Serious: Yes (Hospitalization)
  Sender: FDA-Public Use
  Company Number: JP-MERCK-0705USA05293

PATIENT
  Age: 34 Year
  Sex: Female

DRUGS (2)
  1. SINGULAIR [Suspect]
     Indication: ASTHMA
     Route: 048
     Dates: start: 20070511
  2. UNIPHYL [Suspect]
     Indication: ASTHMA
     Route: 065
     Dates: start: 20070511

REACTIONS (1)
  - DRUG ERUPTION [None]
